FAERS Safety Report 24757372 (Version 1)
Quarter: 2024Q4

REPORT INFORMATION
  Report Type: Spontaneous
  Country: US (occurrence: US)
  Receive Date: 20241220
  Receipt Date: 20241220
  Transmission Date: 20250114
  Serious: Yes (Other)
  Sender: RECORDATI
  Company Number: US-VA000000605-2024000061

PATIENT

DRUGS (3)
  1. SIGNIFOR LAR [Suspect]
     Active Substance: PASIREOTIDE PAMOATE
     Indication: Product used for unknown indication
     Dosage: 40 MILLIGRAM, QM
     Route: 030
     Dates: start: 2023
  2. CARVEDILOL [Suspect]
     Active Substance: CARVEDILOL
     Indication: Blood pressure abnormal
     Dosage: 6.25 MILLIGRAM
  3. CARVEDILOL [Suspect]
     Active Substance: CARVEDILOL
     Dosage: 3/125 MG

REACTIONS (3)
  - Bradycardia [Unknown]
  - Blood glucose increased [Unknown]
  - Dizziness [Unknown]
